FAERS Safety Report 10061668 (Version 2)
Quarter: 2014Q2

REPORT INFORMATION
  Report Type: Spontaneous
  Country: US (occurrence: US)
  Receive Date: 20140407
  Receipt Date: 20140407
  Transmission Date: 20141212
  Serious: Yes (Life-Threatening, Other)
  Sender: FDA-Public Use
  Company Number: US-PFIZER INC-2014092569

PATIENT
  Age: 54 Year
  Sex: Male
  Weight: 95 kg

DRUGS (6)
  1. MINOCYCLINE [Suspect]
     Indication: DERMAL CYST
     Dosage: UNK
  2. ATORVASTATIN CALCIUM [Interacting]
     Dosage: 20 G, UNK
  3. OMEPRAZOLE [Concomitant]
     Dosage: 20 MG, UNK
  4. ASA [Concomitant]
     Dosage: 81 MG, UNK
  5. FISH OIL [Concomitant]
     Indication: SUPPLEMENTATION THERAPY
     Dosage: UNK
  6. VITAMIN D [Concomitant]
     Indication: SUPPLEMENTATION THERAPY

REACTIONS (2)
  - Autoimmune hepatitis [Recovering/Resolving]
  - Drug interaction [Unknown]
